FAERS Safety Report 5418197-3 (Version None)
Quarter: 2007Q3

REPORT INFORMATION
  Report Type: 
  Country: None (occurrence: None)
  Receive Date: 20070817
  Receipt Date: 20070810
  Transmission Date: 20080115
  Serious: Yes (Death, Congenital Anomaly)
  Sender: FDA-Public Use
  Company Number: AU-ELI_LILLY_AND_COMPANY-AU97075569A

PATIENT
  Age: 3 Week
  Weight: 3.182 kg

DRUGS (4)
  1. HUMALOG [Suspect]
     Dosage: UNK, UNKNOWN
  2. THYROXIN [Concomitant]
     Dosage: UNK, UNKNOWN
  3. HYDRALAZINE HCL [Concomitant]
     Dosage: UNK, UNKNOWN
  4. OXPRENOLOL [Concomitant]
     Dosage: UNK, UNKNOWN

REACTIONS (2)
  - CRYPTORCHISM [None]
  - DIAPHRAGMATIC DISORDER [None]
